FAERS Safety Report 14080870 (Version 1)
Quarter: 2017Q4

REPORT INFORMATION
  Report Type: Spontaneous
  Country: US (occurrence: US)
  Receive Date: 20171012
  Receipt Date: 20171012
  Transmission Date: 20180321
  Serious: Yes (Hospitalization)
  Sender: FDA-Public Use
  Company Number: US-BAYER-2017-193286

PATIENT
  Age: 50 Year
  Sex: Female

DRUGS (1)
  1. EOVIST [Suspect]
     Active Substance: GADOXETATE DISODIUM
     Indication: MALIGNANT MELANOMA
     Dosage: 10 ML, ONCE
     Route: 042
     Dates: start: 20170914, end: 20170914

REACTIONS (3)
  - Swelling face [None]
  - Contrast media allergy [None]
  - Paraesthesia [None]

NARRATIVE: CASE EVENT DATE: 20170914
